FAERS Safety Report 8959588 (Version 2)
Quarter: 2013Q1

REPORT INFORMATION
  Report Type: Spontaneous
  Country: CH (occurrence: CH)
  Receive Date: 20121211
  Receipt Date: 20130123
  Transmission Date: 20140127
  Serious: Yes (Other)
  Sender: FDA-Public Use
  Company Number: CH-JNJFOC-20121203695

PATIENT
  Age: 53 Year
  Sex: Female
  Weight: 53 kg

DRUGS (5)
  1. REMICADE [Suspect]
     Indication: ANKYLOSING SPONDYLITIS
     Dosage: TREATED ^SINCE 10 YEARS^
     Route: 042
     Dates: start: 20040129, end: 20121029
  2. IBUPROFEN [Concomitant]
     Route: 048
  3. METHOTREXATE [Concomitant]
     Dates: start: 200411, end: 201104
  4. FOLATE [Concomitant]
     Dates: start: 200411, end: 201104
  5. CALCIUM [Concomitant]
     Dates: start: 2004

REACTIONS (1)
  - Intraductal proliferative breast lesion [Unknown]
